FAERS Safety Report 20675367 (Version 1)
Quarter: 2022Q2

REPORT INFORMATION
  Report Type: Spontaneous
  Country: US (occurrence: None)
  Receive Date: 20220404
  Receipt Date: 20220404
  Transmission Date: 20220721
  Serious: Yes (Hospitalization)
  Sender: FDA-Public Use
  Company Number: None

PATIENT
  Sex: Male

DRUGS (2)
  1. NORDITROPIN [Suspect]
     Active Substance: SOMATROPIN
     Indication: Hypopituitarism
     Dosage: OTHER QUANTITY : 10MG/1.5ML;?
     Route: 058
     Dates: start: 20150708
  2. ERYTHROMYCIN SOL 2% [Concomitant]

REACTIONS (1)
  - Hospitalisation [None]
